FAERS Safety Report 4269729-2 (Version None)
Quarter: 2004Q1

REPORT INFORMATION
  Report Type: 
  Country: None (occurrence: None)
  Receive Date: 20040108
  Receipt Date: 20031223
  Transmission Date: 20041129
  Serious: Yes (Hospitalization)
  Sender: FDA-Public Use
  Company Number: 226016

PATIENT
  Age: 15 Year
  Sex: Male
  Weight: 60 kg

DRUGS (13)
  1. NOVOSEVEN [Suspect]
     Indication: POST PROCEDURAL HAEMORRHAGE
     Dosage: 6 MG X 2 DOSES (Q 7HR), INTRAVENOUS
     Route: 042
     Dates: start: 20020710, end: 20020710
  2. PLASMA [Concomitant]
  3. CRYOPRECIPITATED AHF [Concomitant]
  4. PLATELETS [Concomitant]
  5. ANTIHEMOPHILIC FACTOR (HUMAN) [Concomitant]
  6. RINGER-LACTATE SOLUTION (SODIUM LACTATE, POTASSIUM CHLORIDE, CALCIUM C [Concomitant]
  7. APROTININ (APROTININ) [Concomitant]
  8. VASOPRESSOR DRUGS [Concomitant]
  9. EPINEPHRINE [Concomitant]
  10. NOREPINEPHRINE (NOREPINEPHRINE) [Concomitant]
  11. GLUCOCORTICOIDS [Concomitant]
  12. ANTIBIOTICS [Concomitant]
  13. DEXTRAN (DEXTRAN) [Concomitant]

REACTIONS (2)
  - CARDIAC TAMPONADE [None]
  - THROMBOSIS [None]
